FAERS Safety Report 5285400-2 (Version None)
Quarter: 2007Q1

REPORT INFORMATION
  Report Type: 
  Country: None (occurrence: None)
  Receive Date: 20070328
  Receipt Date: 20070312
  Transmission Date: 20070707
  Serious: Yes (Hospitalization)
  Sender: FDA-Public Use
  Company Number: 15955

PATIENT
  Age: 72 Year
  Sex: Male

DRUGS (6)
  1. CYTARABINE, MFR: MAYNE PHARMA [Suspect]
     Indication: ACUTE MYELOID LEUKAEMIA
     Dosage: 20 MG/M2 PER_CYCLE SC
     Route: 058
     Dates: start: 20061130
  2. ETAMSILATE [Concomitant]
  3. TRANEXAMIC ACID [Concomitant]
  4. ATORVASTATIN CALCIUM [Concomitant]
  5. PERINDOPRIL ERBUMINE [Concomitant]
  6. OMEPRAZOLE [Concomitant]

REACTIONS (2)
  - GASTROENTERITIS [None]
  - PNEUMONIA [None]
